FAERS Safety Report 13294190 (Version 2)
Quarter: 2017Q1

REPORT INFORMATION
  Report Type: Spontaneous
  Country: NO (occurrence: NO)
  Receive Date: 20170303
  Receipt Date: 20170322
  Transmission Date: 20170428
  Serious: Yes (Other)
  Sender: FDA-Public Use
  Company Number: NO-TEVA-742716ISR

PATIENT
  Age: 66 Year
  Sex: Male

DRUGS (4)
  1. GLUCOSAMINE [Concomitant]
     Active Substance: GLUCOSAMINE
     Route: 048
  2. STESOLID [Suspect]
     Active Substance: DIAZEPAM
     Dosage: 2 MILLIGRAM DAILY;
     Route: 048
  3. CENTYL POTASSIUM CHLORIDE [Concomitant]
     Active Substance: BENDROFLUMETHIAZIDE\POTASSIUM CHLORIDE
     Indication: HYPERTENSION
     Route: 065
  4. PINEX FORTE [Concomitant]
     Active Substance: ACETAMINOPHEN\CODEINE PHOSPHATE
     Route: 048

REACTIONS (4)
  - Back pain [Recovered/Resolved]
  - Haemorrhage urinary tract [Unknown]
  - Dysuria [Unknown]
  - Chromaturia [Recovered/Resolved]
